FAERS Safety Report 26175143 (Version 2)
Quarter: 2025Q4

REPORT INFORMATION
  Report Type: Report from Study
  Country: US (occurrence: US)
  Receive Date: 20251218
  Receipt Date: 20251219
  Transmission Date: 20260117
  Serious: Yes (Other)
  Sender: EXELIXIS
  Company Number: US-EXELIXIS-EXL-2025-013999

PATIENT
  Age: 64 Year
  Sex: Male
  Weight: 97 kg

DRUGS (23)
  1. CABOMETYX [Suspect]
     Active Substance: CABOZANTINIB S-MALATE
     Indication: Renal cell carcinoma
     Dosage: 20 MG, QD (SUPPOSED TO TAKE 2 (20 MG) TABLETS (EQUALING 40 MG) BUT ACCIDENTALLY STARTED DOSING ONE 2
     Route: 048
     Dates: start: 20250918
  2. CABOMETYX [Suspect]
     Active Substance: CABOZANTINIB S-MALATE
     Dosage: 40 MG, QD
     Route: 048
     Dates: start: 20251104
  3. CABOMETYX [Suspect]
     Active Substance: CABOZANTINIB S-MALATE
     Dosage: 40 MG, QD
     Route: 048
  4. APAP [Concomitant]
     Active Substance: ACETAMINOPHEN
  5. AMLODIPINE [Concomitant]
     Active Substance: AMLODIPINE BESYLATE
  6. CARVEDILOL [Concomitant]
     Active Substance: CARVEDILOL
  7. NOVOLOG [Concomitant]
     Active Substance: INSULIN ASPART
  8. LEVOCETIRIZINE [Concomitant]
     Active Substance: LEVOCETIRIZINE
  9. LOSARTAN [Concomitant]
     Active Substance: LOSARTAN
  10. NITROSTAT [Concomitant]
     Active Substance: NITROGLYCERIN
  11. PANTOPRAZOLE [Concomitant]
     Active Substance: PANTOPRAZOLE
  12. OZEMPIC [Concomitant]
     Active Substance: SEMAGLUTIDE
  13. TRELEGY ELLIPTA [Concomitant]
     Active Substance: FLUTICASONE FUROATE\UMECLIDINIUM BROMIDE\VILANTEROL TRIFENATATE
  14. ALBUTEROL [Concomitant]
     Active Substance: ALBUTEROL
  15. ATORVASTATIN [Concomitant]
     Active Substance: ATORVASTATIN
  16. CLOPIDOGREL [Concomitant]
     Active Substance: CLOPIDOGREL BISULFATE
  17. EZETIMIBE [Concomitant]
     Active Substance: EZETIMIBE
  18. TRESIBA [Concomitant]
     Active Substance: INSULIN DEGLUDEC
  19. LEVOTHYROXINE [Concomitant]
     Active Substance: LEVOTHYROXINE
  20. MONTELUKAST [Concomitant]
     Active Substance: MONTELUKAST
  21. ONDANSETRON [Concomitant]
     Active Substance: ONDANSETRON
  22. PROCHLORPERAZINE [Concomitant]
     Active Substance: PROCHLORPERAZINE
  23. TAMSULOSIN [Concomitant]
     Active Substance: TAMSULOSIN

REACTIONS (5)
  - Diabetes mellitus [Unknown]
  - Neuropathy peripheral [Unknown]
  - Skin ulcer [Unknown]
  - Dyspnoea [Unknown]
  - Incorrect dose administered [Unknown]

NARRATIVE: CASE EVENT DATE: 20250918
